FAERS Safety Report 13295008 (Version 2)
Quarter: 2017Q2

REPORT INFORMATION
  Report Type: Report from Study
  Country: US (occurrence: US)
  Receive Date: 20170303
  Receipt Date: 20170505
  Transmission Date: 20170830
  Serious: Yes (Death)
  Sender: FDA-Public Use
  Company Number: US-PFIZER INC-2017093615

PATIENT
  Age: 57 Year
  Sex: Male

DRUGS (1)
  1. FOSPHENYTOIN SODIUM. [Suspect]
     Active Substance: FOSPHENYTOIN SODIUM
     Dosage: UNK, (2100 DOSE PHENYTOIN EQUIVALENTS)

REACTIONS (1)
  - Cardiac arrest [Fatal]
